FAERS Safety Report 9990600 (Version 1)
Quarter: 2014Q1

REPORT INFORMATION
  Report Type: Report from Study
  Country: US (occurrence: US)
  Receive Date: 20140310
  Receipt Date: 20140310
  Transmission Date: 20141002
  Serious: No
  Sender: FDA-Public Use
  Company Number: US-ABBVIE-13P-163-1135322-00

PATIENT
  Age: 32 Year
  Sex: Female

DRUGS (6)
  1. HUMIRA [Suspect]
     Indication: CROHN^S DISEASE
     Dates: start: 201305
  2. PROZAC [Concomitant]
     Indication: ANXIETY
     Dosage: DAILY
  3. PROZAC [Concomitant]
     Indication: DEPRESSION
  4. BUSPAR [Concomitant]
     Indication: ANXIETY
  5. BUSPAR [Concomitant]
     Indication: DEPRESSION
  6. IMURAN [Concomitant]
     Indication: CROHN^S DISEASE
     Dosage: 3 PILLS ONCE DAILY

REACTIONS (2)
  - Injection site erythema [Not Recovered/Not Resolved]
  - Injection site warmth [Not Recovered/Not Resolved]
